FAERS Safety Report 17530803 (Version 1)
Quarter: 2020Q1

REPORT INFORMATION
  Report Type: Spontaneous
  Country: US (occurrence: US)
  Receive Date: 20200311
  Receipt Date: 20200311
  Transmission Date: 20200409
  Serious: No
  Sender: FDA-Public Use
  Company Number: US-ASTRAZENECA-2020SE28814

PATIENT
  Sex: Female
  Weight: 96.6 kg

DRUGS (11)
  1. GLIPIZIDE. [Concomitant]
     Active Substance: GLIPIZIDE
  2. PROLIA [Concomitant]
     Active Substance: DENOSUMAB
     Indication: OSTEOPOROSIS
  3. TRILEPTAL [Concomitant]
     Active Substance: OXCARBAZEPINE
  4. XANAX [Concomitant]
     Active Substance: ALPRAZOLAM
  5. BELSOMRA [Concomitant]
     Active Substance: SUVOREXANT
  6. INVOKANA [Concomitant]
     Active Substance: CANAGLIFLOZIN
  7. VIIVRYD [Concomitant]
  8. VITAMINS [Concomitant]
     Active Substance: VITAMINS
  9. BYDUREON BCISE [Suspect]
     Active Substance: EXENATIDE
     Indication: TYPE 2 DIABETES MELLITUS
     Route: 058
     Dates: start: 201910
  10. METFORMIN [Concomitant]
     Active Substance: METFORMIN HYDROCHLORIDE
  11. ZOCOR [Concomitant]
     Active Substance: SIMVASTATIN

REACTIONS (5)
  - Injury associated with device [Unknown]
  - Injection site extravasation [Unknown]
  - Product dose omission [Unknown]
  - Intentional device misuse [Unknown]
  - Incorrect dose administered by device [Unknown]
